FAERS Safety Report 9124364 (Version 3)
Quarter: 2013Q3

REPORT INFORMATION
  Report Type: Spontaneous
  Country: US (occurrence: US)
  Receive Date: 20130116
  Receipt Date: 20130716
  Transmission Date: 20140515
  Serious: Yes (Hospitalization, Other)
  Sender: FDA-Public Use
  Company Number: US-009507513-1301USA005923

PATIENT
  Sex: Female
  Weight: 71.93 kg

DRUGS (2)
  1. FOSAMAX [Suspect]
     Indication: PROPHYLAXIS
     Dosage: 70 MG, UNK
     Route: 048
     Dates: end: 20071107
  2. FOSAMAX [Suspect]
     Dosage: 10 MG, UNK
     Route: 048
     Dates: start: 19981106

REACTIONS (50)
  - Femur fracture [Unknown]
  - Humerus fracture [Not Recovered/Not Resolved]
  - Hip arthroplasty [Unknown]
  - Open reduction of fracture [Unknown]
  - Intramedullary rod insertion [Unknown]
  - Cholecystectomy [Unknown]
  - Open reduction of fracture [Unknown]
  - Bone graft [Unknown]
  - Femur fracture [Unknown]
  - Radial nerve palsy [Recovering/Resolving]
  - Open reduction of fracture [Unknown]
  - Femur fracture [Unknown]
  - Low turnover osteopathy [Unknown]
  - Comminuted fracture [Unknown]
  - Adverse event [Unknown]
  - Fracture [Unknown]
  - Bone operation [Unknown]
  - Pernicious anaemia [Unknown]
  - Urinary incontinence [Unknown]
  - Anxiety [Unknown]
  - Diverticulitis [Unknown]
  - Irritable bowel syndrome [Unknown]
  - Venous ligation [Unknown]
  - Eye allergy [Unknown]
  - Appendicectomy [Unknown]
  - Incisional hernia repair [Unknown]
  - Tooth disorder [Unknown]
  - Fall [Unknown]
  - Osteoporosis [Unknown]
  - Osteoarthritis [Unknown]
  - Sleep disorder [Unknown]
  - Fall [Unknown]
  - Bleeding varicose vein [Unknown]
  - Peripheral vascular disorder [Unknown]
  - Varicose vein operation [Unknown]
  - Anaemia postoperative [Unknown]
  - Fall [Unknown]
  - Drug ineffective [Not Recovered/Not Resolved]
  - Joint hyperextension [Unknown]
  - Joint crepitation [Unknown]
  - Bursitis [Unknown]
  - Peptic ulcer [Unknown]
  - Contusion [Unknown]
  - Fall [Unknown]
  - Contusion [Unknown]
  - Tooth infection [Unknown]
  - Fall [Unknown]
  - Coronary artery disease [Unknown]
  - Urinary tract infection [Unknown]
  - Gastrooesophageal reflux disease [Unknown]
